FAERS Safety Report 21462408 (Version 1)
Quarter: 2022Q4

REPORT INFORMATION
  Report Type: Spontaneous
  Country: US (occurrence: None)
  Receive Date: 20221014
  Receipt Date: 20221014
  Transmission Date: 20230113
  Serious: Yes (Hospitalization)
  Sender: FDA-Public Use
  Company Number: None

PATIENT
  Age: 7 Year
  Sex: Female
  Weight: 32.2 kg

DRUGS (6)
  1. CYTARABINE [Suspect]
     Active Substance: CYTARABINE
     Dates: end: 20220928
  2. DAUNORUBICIN [Suspect]
     Active Substance: DAUNORUBICIN
     Dates: end: 20221006
  3. DEXAMETHASONE [Concomitant]
     Dates: end: 20221008
  4. METHOTREXATE [Suspect]
     Active Substance: METHOTREXATE
     Dates: end: 20221006
  5. ONCASPAR [Suspect]
     Active Substance: PEGASPARGASE
     Dates: end: 20221002
  6. VINCRISTINE SULFATE [Suspect]
     Active Substance: VINCRISTINE SULFATE
     Dates: end: 20221006

REACTIONS (9)
  - Pyrexia [None]
  - Cellulitis [None]
  - Periorbital swelling [None]
  - Paranasal sinus inflammation [None]
  - Inflammation of lacrimal passage [None]
  - Necrosis [None]
  - Nasal mucosal disorder [None]
  - Sinusitis fungal [None]
  - Cerebellar embolism [None]

NARRATIVE: CASE EVENT DATE: 20221009
